FAERS Safety Report 6569162-4 (Version None)
Quarter: 2010Q1

REPORT INFORMATION
  Report Type: 
  Country: None (occurrence: None)
  Receive Date: 20100203
  Receipt Date: 20100126
  Transmission Date: 20100710
  Serious: Yes (Hospitalization)
  Sender: FDA-Public Use
  Company Number: JP-ABBOTT-09P-087-0616075-00

PATIENT
  Sex: Female

DRUGS (4)
  1. KLARICID TABLETS [Suspect]
     Indication: ACUTE TONSILLITIS
     Route: 048
     Dates: start: 20070307, end: 20070310
  2. MEQUITAZINE [Concomitant]
     Indication: ACUTE TONSILLITIS
     Route: 048
     Dates: start: 20070307, end: 20070310
  3. PLAUNOTOL [Concomitant]
     Indication: ACUTE TONSILLITIS
     Route: 048
     Dates: start: 20070307, end: 20070310
  4. LOXONIN [Concomitant]
     Indication: ACUTE TONSILLITIS
     Route: 048
     Dates: start: 20070307, end: 20070310

REACTIONS (2)
  - PYREXIA [None]
  - RASH GENERALISED [None]
